FAERS Safety Report 15283803 (Version 1)
Quarter: 2018Q3

REPORT INFORMATION
  Report Type: Spontaneous
  Country: US (occurrence: US)
  Receive Date: 20180801
  Receipt Date: 20180801
  Transmission Date: 20181010
  Serious: Yes (Other)
  Sender: FDA-Public Use
  Company Number: None

PATIENT
  Age: 58 Year
  Sex: Female

DRUGS (1)
  1. BREO ELLIPTA [Suspect]
     Active Substance: FLUTICASONE FUROATE\VILANTEROL TRIFENATATE
     Indication: ASTHMA
     Dosage: ?          OTHER STRENGTH:200;QUANTITY:1 PUFF(S);?
     Route: 055

REACTIONS (4)
  - Dysphonia [None]
  - Tooth infection [None]
  - Tooth extraction [None]
  - Dental implantation [None]

NARRATIVE: CASE EVENT DATE: 20180727
